APPROVED DRUG PRODUCT: SEVELAMER HYDROCHLORIDE
Active Ingredient: SEVELAMER HYDROCHLORIDE
Strength: 400MG
Dosage Form/Route: TABLET;ORAL
Application: A212599 | Product #001 | TE Code: BX
Applicant: AUROBINDO PHARMA LTD
Approved: Jul 11, 2023 | RLD: No | RS: No | Type: RX